FAERS Safety Report 11490400 (Version 9)
Quarter: 2019Q3

REPORT INFORMATION
  Report Type: Spontaneous
  Country: US (occurrence: US)
  Receive Date: 20150910
  Receipt Date: 20190704
  Transmission Date: 20191004
  Serious: Yes (Hospitalization, Other)
  Sender: FDA-Public Use
  Company Number: US-PFIZER INC-2015066904

PATIENT
  Age: 64 Year
  Sex: Female
  Weight: 85 kg

DRUGS (55)
  1. LYRICA [Suspect]
     Active Substance: PREGABALIN
     Dosage: 150 MG, 1X/DAY (TAKE 1 CAPSULE (150 MG) NIGHTLY)
     Route: 048
  2. OMEPRAZOLE. [Concomitant]
     Active Substance: OMEPRAZOLE
     Indication: GASTROOESOPHAGEAL REFLUX DISEASE
     Dosage: 40 MG, 2X/DAY
     Dates: start: 20150528
  3. PROAIR HFA [Concomitant]
     Active Substance: ALBUTEROL SULFATE
     Dosage: 108MCG/ACT, 2 PUFFS QID PRN
     Dates: start: 20130715
  4. ZANAFLEX [Concomitant]
     Active Substance: TIZANIDINE HYDROCHLORIDE
     Indication: PAIN MANAGEMENT
     Dosage: 4 MG, AS NEEDED (BID)
     Dates: start: 2010, end: 20150329
  5. TRAMADOL HCL/ APAP [Concomitant]
     Indication: PAIN MANAGEMENT
     Dosage: ONE TO TWO TABLETS QID (PARACETAMOL: 325MG, TRAMADOL HYDROCHLORIDE: 37.5MG)
     Dates: start: 20110317
  6. ELIDEL [Concomitant]
     Active Substance: PIMECROLIMUS
     Dosage: UNK UNK, AS NEEDED (BID)
     Route: 061
  7. POTASSIUM [Concomitant]
     Active Substance: POTASSIUM
     Dosage: UNK
     Dates: start: 20150518
  8. MONTELUKAST [Concomitant]
     Active Substance: MONTELUKAST SODIUM
     Dosage: 10 MG, DAILY
     Route: 048
     Dates: start: 20130319
  9. OXYBUTYNIN. [Concomitant]
     Active Substance: OXYBUTYNIN CHLORIDE
     Dosage: 5 MG, DAILY
     Route: 048
     Dates: start: 20150701
  10. PROBIOTICS [Concomitant]
     Active Substance: PROBIOTICS NOS
     Dosage: UNK, 1X/DAY [2 - QD]
  11. LYRICA [Suspect]
     Active Substance: PREGABALIN
     Dosage: 150 MG, DAILY (TAKE 1 CAPSULE(S) AT BEDTIME FOR 90 DAYS)
     Route: 048
  12. ZANTAC [Concomitant]
     Active Substance: RANITIDINE HYDROCHLORIDE
     Indication: GASTROOESOPHAGEAL REFLUX DISEASE
     Dosage: 150 MG, QHS
     Route: 048
     Dates: start: 20110120
  13. FLUOCINOLONE ACET OIL [Concomitant]
     Dosage: 0.01 % 3 DROPS, AS NEEDED
     Route: 061
  14. ALCOHOL. [Concomitant]
     Active Substance: ALCOHOL
     Dosage: QHS PRN
  15. AVEENO ANTI-ITCH [Concomitant]
     Dosage: UNK, AS NEEDED
  16. AVEENO SOOTHING BATH [Concomitant]
     Dosage: UNK, AS NEEDED
  17. LYRICA [Suspect]
     Active Substance: PREGABALIN
     Indication: FIBROMYALGIA
     Dosage: 100 MG, 1X/DAY (50MG, TWO CAPSULES AT BEDTIME)
     Route: 048
     Dates: start: 201505
  18. SINGULAIR [Concomitant]
     Active Substance: MONTELUKAST SODIUM
     Dosage: 10 MG, DAILY
     Dates: start: 20130319
  19. DITROPAN [Concomitant]
     Active Substance: OXYBUTYNIN CHLORIDE
     Dosage: 5 MG, 1X/DAY (AM)
     Dates: start: 20150701
  20. SORIATANE [Concomitant]
     Active Substance: ACITRETIN
     Dosage: 10 MG, DAILY
     Dates: start: 20050722, end: 20050722
  21. D-35000 ID [Concomitant]
     Dosage: UNK, 1X/DAY (D-35000 IU CAPSULE QD )
     Dates: start: 20110213
  22. CLARITIN [Concomitant]
     Active Substance: LORATADINE
     Dosage: 10 MG, DAILY
     Dates: end: 20150329
  23. TUMS ANTACID/CALCIUM [Concomitant]
     Dosage: UNK, AS NEEDED
  24. AVEENO MOISTURIZING CREAM [Concomitant]
     Dosage: UNK, AS NEEDED
  25. MEXILETINE [Concomitant]
     Active Substance: MEXILETINE
     Dosage: 150 MG, 2X/DAY
     Route: 048
     Dates: start: 20150518
  26. GOLD BOND ORIGINAL STRENGTH POWDER [Concomitant]
     Active Substance: MENTHOL\ZINC OXIDE
     Dosage: UNK(PRN)
  27. AVEENO SOAP [Concomitant]
     Dosage: UNK
  28. ALBUTEROL SULFATE. [Concomitant]
     Active Substance: ALBUTEROL SULFATE
     Dosage: 1 DF, 4X/DAY [0.083% (2.5MG/3ML) 1 VIAL VIA NEBULIZER QID]
     Dates: start: 20160216
  29. HYDROCORTISONE. [Concomitant]
     Active Substance: HYDROCORTISONE
     Dosage: (2.5 % BID ), AS NEEDED
     Dates: start: 20180112
  30. LYRICA [Suspect]
     Active Substance: PREGABALIN
     Indication: BACK PAIN
     Dosage: 50 MG, 3X/DAY (3 TIMES A DAY BY ORAL ROUTE AT BEDTIME FOR 90 DAYS)
     Route: 048
  31. ZANTAC [Concomitant]
     Active Substance: RANITIDINE HYDROCHLORIDE
     Indication: HIATUS HERNIA
     Dosage: 150 MG, 1X/DAY (QHS)
     Dates: start: 20150528
  32. DESONIDE. [Concomitant]
     Active Substance: DESONIDE
     Dosage: 0.05 %, AS NEEDED (BID)
     Route: 061
  33. POTASSIUM [Concomitant]
     Active Substance: POTASSIUM
     Dosage: 99 MG, DAILY
     Dates: start: 20130324
  34. LOPRESSOR [Concomitant]
     Active Substance: METOPROLOL TARTRATE
     Dosage: 12.5 MG, 2X/DAY
     Route: 048
     Dates: start: 20150518
  35. SYSTANE LUBRICANT [Concomitant]
     Active Substance: POLYETHYLENE GLYCOL 400\PROPYLENE GLYCOL
     Dosage: UNK UNK, AS NEEDED
     Route: 047
  36. FLONASE [Concomitant]
     Active Substance: FLUTICASONE PROPIONATE
     Dosage: 50MCG, 2 SPRAYS EACH NOSTRIL QD PRN
     Route: 045
     Dates: start: 20141013
  37. LYRICA [Suspect]
     Active Substance: PREGABALIN
     Indication: PAIN MANAGEMENT
     Dosage: 150 MG, 1X/DAY (50MG, THREE CAPSULES AT BEDTIME/ 3 CAPSULES QHS))
     Route: 048
     Dates: start: 20100507
  38. LYRICA [Suspect]
     Active Substance: PREGABALIN
     Indication: PAIN
     Dosage: 150 MG, 1X/DAY (THREE CAPSULES AT BEDTIME)
     Route: 048
     Dates: start: 201508
  39. NYSTATIN. [Concomitant]
     Active Substance: NYSTATIN
     Dosage: 100000 UN BID PRN
     Route: 061
     Dates: start: 20130115
  40. TRIAMCINOLONE [Concomitant]
     Active Substance: TRIAMCINOLONE
     Dosage: 0.1 % QAM PRN
     Route: 061
  41. BIOTIN [Concomitant]
     Active Substance: BIOTIN
     Dosage: 5000 ?G, DAILY
     Dates: end: 20150329
  42. COLACE [Concomitant]
     Active Substance: DOCUSATE SODIUM
     Dosage: 200 MG, 1X/DAY (QHS)
  43. THYMOL [Concomitant]
     Active Substance: THYMOL
     Dosage: 4 %, UNK
     Route: 061
  44. SAVELLA [Concomitant]
     Active Substance: MILNACIPRAN HYDROCHLORIDE
     Indication: PAIN MANAGEMENT
     Dosage: 50 MG, 2X/DAY
     Dates: start: 20120110, end: 20120329
  45. SYMBICORT [Concomitant]
     Active Substance: BUDESONIDE\FORMOTEROL FUMARATE DIHYDRATE
     Dosage: 160/4.5MCG, TWO PUFFS BID
     Dates: start: 20120413
  46. FLUOCINOLONE ACET CREAM [Concomitant]
     Dosage: 0.01 %, QHS (PRN) (60G)
     Route: 061
  47. KENALOG [Concomitant]
     Active Substance: TRIAMCINOLONE ACETONIDE
     Dosage: BID PRN
     Route: 061
  48. BENADRYL [Concomitant]
     Active Substance: DIPHENHYDRAMINE HYDROCHLORIDE
     Dosage: 50 MG, 1X/DAY (QHS)
     Dates: end: 20150329
  49. POTASSIUM CHLORIDE. [Concomitant]
     Active Substance: POTASSIUM CHLORIDE
     Dosage: 10 MEQ, DAILY
     Route: 048
     Dates: start: 20150518
  50. DOCUSATE SODIUM. [Concomitant]
     Active Substance: DOCUSATE SODIUM
     Dosage: 200 MG, 1X/DAY (QHS)
  51. CELEBREX [Concomitant]
     Active Substance: CELECOXIB
     Dosage: UNK
  52. LOPRESSOR [Concomitant]
     Active Substance: METOPROLOL TARTRATE
     Dosage: 25 MG, 1X/DAY
     Route: 061
     Dates: start: 20150518
  53. OMEPRAZOLE. [Concomitant]
     Active Substance: OMEPRAZOLE
     Indication: HIATUS HERNIA
  54. VITAMIN D3 [Concomitant]
     Active Substance: CHOLECALCIFEROL
     Dosage: 5000 IU, DAILY [QD ]
     Route: 048
     Dates: start: 20110213
  55. NIVEA [Concomitant]
     Dosage: UNK

REACTIONS (15)
  - Respiratory arrest [Recovered/Resolved]
  - Coma [Recovered/Resolved]
  - Cardiac arrest [Recovered/Resolved]
  - Weight decreased [Recovered/Resolved]
  - Vomiting [Not Recovered/Not Resolved]
  - Drug withdrawal syndrome [Unknown]
  - Hypoaesthesia [Recovered/Resolved]
  - Malaise [Recovered/Resolved]
  - Diarrhoea [Recovered/Resolved]
  - Gastric disorder [Recovered/Resolved]
  - Influenza [Recovered/Resolved]
  - Long QT syndrome [Not Recovered/Not Resolved]
  - Blood potassium decreased [Recovered/Resolved]
  - Paraesthesia [Recovered/Resolved]
  - Shock [Recovered/Resolved]

NARRATIVE: CASE EVENT DATE: 2015
